FAERS Safety Report 8159787-7 (Version None)
Quarter: 2012Q1

REPORT INFORMATION
  Report Type: 
  Country: None (occurrence: None)
  Receive Date: 20120223
  Receipt Date: 20120215
  Transmission Date: 20120608
  Serious: Yes (Death)
  Sender: FDA-Public Use
  Company Number: FR-ACTELION-A-CH2012-59467

PATIENT
  Sex: Male
  Weight: 66 kg

DRUGS (8)
  1. TRACLEER [Suspect]
     Indication: SCLERODERMA RENAL CRISIS
     Dosage: 125 MG, BID
     Route: 048
     Dates: start: 20110511
  2. TRACLEER [Suspect]
     Dosage: 62.5 MG, BID
     Route: 048
     Dates: start: 20110413, end: 20110510
  3. CALCIPARINE [Concomitant]
  4. NEXIUM [Concomitant]
  5. LEVOTHYROXINE SODIUM [Concomitant]
  6. EPREX [Concomitant]
  7. PAROXETINE HYDROCHLORIDE [Concomitant]
  8. PREDNISONE TAB [Concomitant]

REACTIONS (4)
  - REFUSAL OF TREATMENT BY PATIENT [None]
  - CARDIAC ARREST [None]
  - TERMINAL STATE [None]
  - RENAL FAILURE [None]
